FAERS Safety Report 6136345-7 (Version None)
Quarter: 2009Q1

REPORT INFORMATION
  Report Type: 
  Country: None (occurrence: None)
  Receive Date: 20090330
  Receipt Date: 20090327
  Transmission Date: 20090719
  Serious: Yes (Hospitalization, Disabling)
  Sender: FDA-Public Use
  Company Number: FR-RB-011931-09

PATIENT
  Age: 45 Year
  Sex: Male

DRUGS (5)
  1. SUBUTEX [Suspect]
     Indication: DRUG ABUSE
     Route: 048
     Dates: start: 20070101
  2. SUBUTEX [Suspect]
     Route: 065
     Dates: start: 20081201
  3. SUBUTEX [Suspect]
     Route: 065
     Dates: start: 20090101
  4. DOLIPRANE [Concomitant]
     Indication: DRUG USE FOR UNKNOWN INDICATION
     Dosage: DOSING INFORMATION UNKNOWN.
     Route: 065
  5. VOLTAREN [Concomitant]
     Indication: DRUG USE FOR UNKNOWN INDICATION
     Dosage: DOSING INFORMATION UNKNOWN.
     Route: 065

REACTIONS (3)
  - PULMONARY EMBOLISM [None]
  - SLEEP APNOEA SYNDROME [None]
  - TRANSAMINASES INCREASED [None]
